FAERS Safety Report 5411456-X (Version None)
Quarter: 2007Q3

REPORT INFORMATION
  Report Type: 
  Country: None (occurrence: None)
  Receive Date: 20070810
  Receipt Date: 20070808
  Transmission Date: 20080115
  Serious: Yes (Hospitalization)
  Sender: FDA-Public Use
  Company Number: JP-BRISTOL-MYERS SQUIBB COMPANY-13854138

PATIENT
  Age: 56 Year
  Sex: Female
  Weight: 49 kg

DRUGS (9)
  1. ABATACEPT [Suspect]
     Indication: RHEUMATOID ARTHRITIS
     Route: 041
     Dates: start: 20070220
  2. PREDNISOLONE [Concomitant]
     Indication: RHEUMATOID ARTHRITIS
     Route: 048
  3. VOLTAREN-XR [Concomitant]
     Indication: RHEUMATOID ARTHRITIS
     Route: 048
  4. VOLTAREN [Concomitant]
     Indication: RHEUMATOID ARTHRITIS
     Route: 054
  5. THYRADIN S [Concomitant]
     Indication: CHOLELITHIASIS
     Route: 048
  6. URSO 250 [Concomitant]
  7. FLURBIPROFEN [Concomitant]
     Indication: RHEUMATOID ARTHRITIS
  8. ALDIOXA [Concomitant]
     Route: 048
  9. FOSMICIN [Concomitant]
     Route: 048
     Dates: start: 20070719, end: 20070719

REACTIONS (1)
  - GASTROENTERITIS VIRAL [None]
